FAERS Safety Report 7935754-0 (Version None)
Quarter: 2011Q4

REPORT INFORMATION
  Report Type: 
  Country: None (occurrence: None)
  Receive Date: 20111121
  Receipt Date: 20111109
  Transmission Date: 20120403
  Serious: Yes (Life-Threatening)
  Sender: FDA-Public Use
  Company Number: TUK2011A00194

PATIENT
  Age: 70 Year
  Sex: Male

DRUGS (5)
  1. TAMSULOSIN HCL [Concomitant]
  2. METFORMIN HCL [Concomitant]
  3. SIMVASTATIN [Concomitant]
  4. PIOGLITAZONE [Suspect]
     Indication: PRODUCT USED FOR UNKNOWN INDICATION
     Dosage: (15 MG)
     Route: 048
  5. RAMIPRIL [Concomitant]

REACTIONS (1)
  - BLADDER TRANSITIONAL CELL CARCINOMA [None]
